FAERS Safety Report 23313547 (Version 1)
Quarter: 2023Q4

REPORT INFORMATION
  Report Type: Spontaneous
  Country: JP (occurrence: JP)
  Receive Date: 20231219
  Receipt Date: 20231219
  Transmission Date: 20240110
  Serious: Yes (Other)
  Sender: FDA-Public Use
  Company Number: JP-AMGEN-JPNSP2023222049

PATIENT

DRUGS (2)
  1. SOTORASIB [Suspect]
     Active Substance: SOTORASIB
     Indication: Lung adenocarcinoma
     Dosage: UNK
     Route: 065
  2. SOTORASIB [Suspect]
     Active Substance: SOTORASIB
     Indication: K-ras gene mutation

REACTIONS (6)
  - Lung adenocarcinoma recurrent [Unknown]
  - Lung adenocarcinoma stage IV [Unknown]
  - Adverse event [Unknown]
  - Aspartate aminotransferase increased [Unknown]
  - Alanine aminotransferase increased [Unknown]
  - Diarrhoea [Unknown]
